FAERS Safety Report 7588663-3 (Version None)
Quarter: 2011Q3

REPORT INFORMATION
  Report Type: 
  Country: None (occurrence: None)
  Receive Date: 20110705
  Receipt Date: 20110705
  Transmission Date: 20111222
  Serious: Yes (Other)
  Sender: FDA-Public Use
  Company Number: None

PATIENT
  Age: 67 Year
  Sex: Male
  Weight: 85.728 kg

DRUGS (8)
  1. GEMFIBROZIL [Interacting]
     Route: 048
  2. HYDROCODONE BITARTRATE + ACETAMINOPHEN [Interacting]
     Route: 048
  3. METFORMIN HCL [Concomitant]
     Dosage: 500 MG
     Route: 048
  4. FISH OIL [Interacting]
     Route: 048
  5. CLARITIN [Interacting]
     Route: 048
  6. METFORMIN HCL [Suspect]
     Indication: TYPE 2 DIABETES MELLITUS
     Dosage: 500 MG
     Route: 048
     Dates: start: 20100901, end: 20100918
  7. NIACIN [Interacting]
     Route: 048
  8. IBUPROFEN [Interacting]
     Route: 048

REACTIONS (8)
  - OEDEMA MOUTH [None]
  - INSOMNIA [None]
  - DIARRHOEA [None]
  - BLISTER [None]
  - AGITATION [None]
  - NAUSEA [None]
  - VOMITING [None]
  - HEPATITIS ACUTE [None]
